FAERS Safety Report 15660001 (Version 7)
Quarter: 2019Q3

REPORT INFORMATION
  Report Type: Spontaneous
  Country: CA (occurrence: CA)
  Receive Date: 20181127
  Receipt Date: 20190829
  Transmission Date: 20191004
  Serious: Yes (Hospitalization, Other)
  Sender: FDA-Public Use
  Company Number: CA-ROCHE-2220964

PATIENT
  Age: 30 Year
  Sex: Female

DRUGS (8)
  1. IRON [Concomitant]
     Active Substance: IRON
     Indication: MINERAL SUPPLEMENTATION
     Dosage: 1 DF, QD
     Route: 048
  2. RUPALL [Concomitant]
     Active Substance: RUPATADINE FUMARATE
     Indication: URTICARIA
     Dosage: 1 DF, PRN
     Route: 048
     Dates: start: 20180710, end: 201810
  3. PANTOLOC [PANTOPRAZOLE] [Concomitant]
     Active Substance: PANTOPRAZOLE SODIUM
     Indication: CHRONIC SPONTANEOUS URTICARIA
     Dosage: 1 DF, QD
     Route: 048
     Dates: start: 201903
  4. XOLAIR [Suspect]
     Active Substance: OMALIZUMAB
     Route: 058
     Dates: start: 20190725
  5. ZANTAC [Concomitant]
     Active Substance: RANITIDINE HYDROCHLORIDE
     Indication: URTICARIA
     Dosage: 1 DF, PRN
     Route: 048
     Dates: start: 20180710
  6. XOLAIR [Suspect]
     Active Substance: OMALIZUMAB
     Indication: CHRONIC SPONTANEOUS URTICARIA
     Route: 058
     Dates: start: 20181019
  7. XOLAIR [Suspect]
     Active Substance: OMALIZUMAB
     Route: 058
     Dates: start: 20181224
  8. BENADRYL [Concomitant]
     Active Substance: DIPHENHYDRAMINE HYDROCHLORIDE
     Indication: URTICARIA
     Dosage: 1 DF, PRN
     Route: 048
     Dates: start: 2016

REACTIONS (16)
  - Skin discolouration [Unknown]
  - Anxiety [Unknown]
  - Feeling abnormal [Unknown]
  - Therapeutic response shortened [Unknown]
  - Temperature intolerance [Unknown]
  - Seizure [Unknown]
  - Discomfort [Unknown]
  - Rash macular [Unknown]
  - Pruritus [Unknown]
  - Attention deficit/hyperactivity disorder [Unknown]
  - Inappropriate schedule of product administration [Unknown]
  - Angioedema [Unknown]
  - Wound [Unknown]
  - Swelling [Unknown]
  - Urticaria [Not Recovered/Not Resolved]
  - Nervous system disorder [Unknown]

NARRATIVE: CASE EVENT DATE: 20181019
